FAERS Safety Report 8387106-X (Version None)
Quarter: 2012Q2

REPORT INFORMATION
  Report Type: 
  Country: None (occurrence: None)
  Receive Date: 20120523
  Receipt Date: 20120523
  Transmission Date: 20120825
  Serious: Yes (Other)
  Sender: FDA-Public Use
  Company Number: None

PATIENT
  Sex: Female
  Weight: 81.6475 kg

DRUGS (5)
  1. GABAPENTIN [Concomitant]
  2. PRAVASTATIN [Concomitant]
  3. METHOZOLAMIDE [Concomitant]
  4. ENALAPRIL MALEATE [Concomitant]
  5. TRAMADOL HYDROCHLORIDE AND ACETAMINOPHEN [Suspect]
     Indication: OSTEOARTHRITIS
     Dosage: 1 TAB 37.5/325 4X P DAY 047
     Route: 048
     Dates: start: 20120301, end: 20120423

REACTIONS (10)
  - ABDOMINAL PAIN UPPER [None]
  - HEADACHE [None]
  - CONSTIPATION [None]
  - PRODUCT SUBSTITUTION ISSUE [None]
  - DIZZINESS [None]
  - DRUG INEFFECTIVE [None]
  - NAUSEA [None]
  - TONGUE DISORDER [None]
  - NERVOUSNESS [None]
  - DYSGEUSIA [None]
